FAERS Safety Report 4886751-3 (Version None)
Quarter: 2006Q1

REPORT INFORMATION
  Report Type: 
  Country: None (occurrence: None)
  Receive Date: 20060120
  Receipt Date: 20060112
  Transmission Date: 20060701
  Serious: Yes (Disabling)
  Sender: FDA-Public Use
  Company Number: US-ROCHE-431910

PATIENT
  Age: 57 Year
  Sex: Female
  Weight: 59 kg

DRUGS (4)
  1. XELODA [Suspect]
     Route: 048
     Dates: start: 20050105, end: 20051210
  2. XELODA [Suspect]
     Route: 048
     Dates: start: 20060103
  3. VICOPROFEN [Concomitant]
     Indication: PAIN
     Route: 048
     Dates: start: 20050801
  4. ZOMETA [Concomitant]
     Route: 042
     Dates: start: 20030108

REACTIONS (7)
  - ABDOMINAL PAIN LOWER [None]
  - COMPUTERISED TOMOGRAM ABNORMAL [None]
  - HYDRONEPHROSIS [None]
  - HYDROURETER [None]
  - PALMAR-PLANTAR ERYTHRODYSAESTHESIA SYNDROME [None]
  - URETHRAL PAIN [None]
  - URETHRAL SPASM [None]
